FAERS Safety Report 6356566-8 (Version None)
Quarter: 2009Q3

REPORT INFORMATION
  Report Type: 
  Country: None (occurrence: None)
  Receive Date: 20090910
  Receipt Date: 20090910
  Transmission Date: 20100115
  Serious: Yes (Other)
  Sender: FDA-Public Use
  Company Number: None

PATIENT
  Age: 25 Year
  Sex: Female
  Weight: 47.1741 kg

DRUGS (1)
  1. TAMIFLU [Suspect]
     Indication: INFLUENZA
     Dosage: 75 MG -1 CAPSULE- 2 TIMES PER DAY PO
     Route: 048
     Dates: start: 20090905, end: 20090910

REACTIONS (3)
  - DIZZINESS [None]
  - HALLUCINATION, AUDITORY [None]
  - NAUSEA [None]
